FAERS Safety Report 18601011 (Version 1)
Quarter: 2020Q4

REPORT INFORMATION
  Report Type: Spontaneous
  Country: US (occurrence: US)
  Receive Date: 20201210
  Receipt Date: 20201210
  Transmission Date: 20210114
  Serious: Yes (Other)
  Sender: FDA-Public Use
  Company Number: None

PATIENT
  Age: 48 Year
  Sex: Male
  Weight: 88 kg

DRUGS (7)
  1. ENOXAPARIN 40 MG [Concomitant]
     Active Substance: ENOXAPARIN
     Dates: start: 20201209
  2. PREDNISONE 40 MG TAB [Concomitant]
     Dates: start: 20201209, end: 20201209
  3. ASCORBIC ACID 500 MG TAB [Concomitant]
     Dates: start: 20201209
  4. ACETAMINOPHEN 650 MG [Concomitant]
     Active Substance: ACETAMINOPHEN
     Dates: start: 20201209
  5. REMDESIVIR. [Suspect]
     Active Substance: REMDESIVIR
     Indication: COVID-19
     Dosage: ?          OTHER FREQUENCY:ONCE;?
     Route: 042
     Dates: start: 20201209, end: 20201209
  6. DOXYCYCLINE HYCLATE 100 MG TAB [Concomitant]
     Active Substance: DOXYCYCLINE HYCLATE
     Dates: start: 20201209
  7. CEFTRIAXONE 1GM [Concomitant]
     Dates: start: 20201209

REACTIONS (5)
  - Vomiting [None]
  - Nausea [None]
  - Chills [None]
  - Infusion related reaction [None]
  - Refusal of treatment by patient [None]

NARRATIVE: CASE EVENT DATE: 20201209
